FAERS Safety Report 25073510 (Version 1)
Quarter: 2025Q1

REPORT INFORMATION
  Report Type: Spontaneous
  Country: DK (occurrence: DK)
  Receive Date: 20250313
  Receipt Date: 20250313
  Transmission Date: 20250409
  Serious: Yes (Hospitalization, Other)
  Sender: TEVA
  Company Number: None

PATIENT
  Age: 61 Year
  Sex: Male

DRUGS (3)
  1. DISULFIRAM [Suspect]
     Active Substance: DISULFIRAM
     Indication: Alcohol detoxification
     Route: 048
     Dates: start: 20241029, end: 20241207
  2. SERTRALINE HYDROCHLORIDE [Concomitant]
     Active Substance: SERTRALINE HYDROCHLORIDE
     Indication: Sedative therapy
     Dosage: SERTRALIN TEVA
     Route: 065
     Dates: start: 2024, end: 20241206
  3. CHLORDIAZEPOXIDE [Concomitant]
     Active Substance: CHLORDIAZEPOXIDE
     Indication: Alcohol detoxification
     Route: 065
     Dates: start: 20241028, end: 20241210

REACTIONS (9)
  - Hepatitis acute [Recovered/Resolved]
  - Nausea [Recovering/Resolving]
  - Food aversion [Recovering/Resolving]
  - Chromaturia [Recovering/Resolving]
  - Weight decreased [Recovering/Resolving]
  - Fatigue [Recovering/Resolving]
  - Ocular icterus [Recovering/Resolving]
  - Decreased appetite [Recovering/Resolving]
  - Malaise [Recovering/Resolving]

NARRATIVE: CASE EVENT DATE: 20241101
